FAERS Safety Report 9379018 (Version 2)
Quarter: 2014Q1

REPORT INFORMATION
  Report Type: Spontaneous
  Country: FR (occurrence: FR)
  Receive Date: 20130702
  Receipt Date: 20140108
  Transmission Date: 20141002
  Serious: Yes (Hospitalization)
  Sender: FDA-Public Use
  Company Number: FR-BRISTOL-MYERS SQUIBB COMPANY-19055169

PATIENT
  Age: 56 Year
  Sex: Male

DRUGS (10)
  1. COUMADINE [Suspect]
     Indication: PULMONARY EMBOLISM
     Route: 048
     Dates: end: 20130613
  2. BISOPROLOL [Concomitant]
  3. EURELIX [Concomitant]
  4. SERETIDE [Concomitant]
  5. ZOPICLONE [Concomitant]
  6. ATARAX [Concomitant]
  7. GAVISCON [Concomitant]
  8. OMEPRAZOLE [Concomitant]
  9. PROCTOLOG [Concomitant]
  10. DAFLON [Concomitant]

REACTIONS (6)
  - International normalised ratio increased [Recovered/Resolved]
  - Melaena [Unknown]
  - Angiodysplasia [Unknown]
  - Anaemia [Recovering/Resolving]
  - Diarrhoea [Unknown]
  - Metabolic acidosis [Unknown]
